FAERS Safety Report 25990416 (Version 3)
Quarter: 2025Q4

REPORT INFORMATION
  Report Type: Report from Study
  Country: BR (occurrence: BR)
  Receive Date: 20251103
  Receipt Date: 20251218
  Transmission Date: 20260117
  Serious: Yes (Hospitalization)
  Sender: PFIZER
  Company Number: BR-PFIZER INC-PV202500128020

PATIENT
  Age: 38 Year
  Sex: Male

DRUGS (1)
  1. LORBRENA [Suspect]
     Active Substance: LORLATINIB
     Dosage: 100 MG
     Dates: start: 20250827

REACTIONS (11)
  - Dysphonia [Unknown]
  - Gastroenteritis bacterial [Unknown]
  - Peripheral swelling [Recovered/Resolved]
  - Headache [Unknown]
  - Musculoskeletal stiffness [Unknown]
  - Neck pain [Unknown]
  - Thinking abnormal [Unknown]
  - Speech disorder [Unknown]
  - Musculoskeletal discomfort [Recovering/Resolving]
  - Increased appetite [Unknown]
  - Bone lesion [Unknown]

NARRATIVE: CASE EVENT DATE: 20250101
